FAERS Safety Report 8492122-3 (Version None)
Quarter: 2012Q3

REPORT INFORMATION
  Report Type: 
  Country: None (occurrence: None)
  Receive Date: 20120706
  Receipt Date: 20120627
  Transmission Date: 20120928
  Serious: Yes (Other)
  Sender: FDA-Public Use
  Company Number: JP-VERTEX PHARMACEUTICALS INC.-AE-2012-007687

PATIENT
  Age: 61 Year
  Sex: Male

DRUGS (15)
  1. CLARITIN REDITABS [Concomitant]
     Route: 048
  2. RIBAVIRIN [Concomitant]
     Route: 048
     Dates: start: 20120411, end: 20120415
  3. LIVALO [Concomitant]
     Route: 048
  4. TELAVIC (TELAPREVIR) [Suspect]
     Indication: HEPATITIS C
     Route: 048
     Dates: start: 20120313, end: 20120605
  5. TELAVIC (TELAPREVIR) [Suspect]
     Route: 048
     Dates: start: 20120313, end: 20120605
  6. RIBAVIRIN [Concomitant]
     Indication: HEPATITIS C
     Route: 048
     Dates: start: 20120313, end: 20120410
  7. PEGINTERFERON ALFA-2B [Concomitant]
     Indication: HEPATITIS C
     Route: 058
     Dates: start: 20120313
  8. PEGINTERFERON ALFA-2B [Concomitant]
     Route: 058
     Dates: start: 20120313
  9. ALOSENN [Concomitant]
     Route: 048
  10. RIBAVIRIN [Concomitant]
     Route: 048
     Dates: start: 20120502
  11. LIVALO [Concomitant]
     Route: 048
  12. EPADEL S [Concomitant]
     Route: 048
  13. FEROTYM [Concomitant]
     Route: 048
  14. RIBAVIRIN [Concomitant]
     Route: 048
     Dates: start: 20120416
  15. EPADEL S [Concomitant]
     Route: 048

REACTIONS (3)
  - RASH [None]
  - PLATELET COUNT DECREASED [None]
  - ANAEMIA [None]
